FAERS Safety Report 8134022-4 (Version None)
Quarter: 2012Q1

REPORT INFORMATION
  Report Type: 
  Country: None (occurrence: None)
  Receive Date: 20120214
  Receipt Date: 20120203
  Transmission Date: 20120608
  Serious: Yes (Other)
  Sender: FDA-Public Use
  Company Number: TR-AMGEN-TURSP2012008393

PATIENT
  Age: 52 Year
  Sex: Female

DRUGS (1)
  1. ENBREL [Suspect]
     Indication: PSORIASIS
     Dosage: 50 MG, WEEKLY
     Route: 058
     Dates: start: 20111020, end: 20111208

REACTIONS (6)
  - PSORIASIS [None]
  - ANXIETY [None]
  - HYPERSENSITIVITY [None]
  - PRURITUS [None]
  - RASH PUSTULAR [None]
  - WOUND [None]
